FAERS Safety Report 20462303 (Version 5)
Quarter: 2022Q2

REPORT INFORMATION
  Report Type: Report from Study
  Country: CN (occurrence: CN)
  Receive Date: 20220211
  Receipt Date: 20220615
  Transmission Date: 20220721
  Serious: Yes (Life-Threatening, Hospitalization)
  Sender: FDA-Public Use
  Company Number: CN-PFIZER INC-202200232489

PATIENT
  Age: 68 Year
  Sex: Female
  Weight: 53 kg

DRUGS (7)
  1. EPIRUBICIN HYDROCHLORIDE [Suspect]
     Active Substance: EPIRUBICIN HYDROCHLORIDE
     Indication: Triple negative breast cancer
     Dosage: 140.4 MG, AS PER PROTOCOL (60 MG/M^2 OR 90 MG/M^2 EVERY 2 WEEKS FOR A TOTAL OF 4 DOSES). (90 MG/M2 1
     Route: 042
     Dates: start: 20220104
  2. PACLITAXEL [Suspect]
     Active Substance: PACLITAXEL
     Indication: Triple negative breast cancer
     Dosage: 126.4 MG, 80 MG/M2,1 IN 1 WK
     Route: 042
     Dates: start: 20211015
  3. PACLITAXEL [Suspect]
     Active Substance: PACLITAXEL
     Dosage: 126.4 MG, 80 MG/M2,1 IN 1 WK
     Route: 042
     Dates: start: 20211015
  4. CYCLOPHOSPHAMIDE [Suspect]
     Active Substance: CYCLOPHOSPHAMIDE
     Indication: Triple negative breast cancer
     Dosage: 936 MG, 600 MG/M2,1 IN 2 WK
     Route: 042
     Dates: start: 20220104
  5. CYCLOPHOSPHAMIDE [Suspect]
     Active Substance: CYCLOPHOSPHAMIDE
     Dosage: 936 MG, 600 MG/M2,1 IN 2 WK
     Route: 042
     Dates: start: 20220104
  6. ATEZOLIZUMAB [Suspect]
     Active Substance: ATEZOLIZUMAB
     Indication: Triple negative breast cancer
     Dosage: 840 MG, 1 IN 2 WK
     Route: 041
     Dates: start: 20211015
  7. PEGFILGRASTIM [Concomitant]
     Active Substance: PEGFILGRASTIM
     Indication: Triple negative breast cancer
     Dosage: 6 MG, 1 IN 2 WK
     Route: 058
     Dates: start: 20220106

REACTIONS (2)
  - Respiratory failure [Not Recovered/Not Resolved]
  - Pneumonia [Not Recovered/Not Resolved]

NARRATIVE: CASE EVENT DATE: 20220124
